FAERS Safety Report 12870797 (Version 1)
Quarter: 2016Q4

REPORT INFORMATION
  Report Type: Spontaneous
  Country: US (occurrence: US)
  Receive Date: 20161021
  Receipt Date: 20161021
  Transmission Date: 20170207
  Serious: Yes (Other)
  Sender: FDA-Public Use
  Company Number: US-009507513-1610USA008404

PATIENT
  Age: 53 Year
  Sex: Female

DRUGS (6)
  1. TEMODAR [Suspect]
     Active Substance: TEMOZOLOMIDE
     Indication: PITUITARY CANCER METASTATIC
     Dosage: 50% DOSE
     Route: 048
     Dates: start: 201403
  2. TEMODAR [Suspect]
     Active Substance: TEMOZOLOMIDE
     Dosage: INCREASED TO 75%
     Route: 048
     Dates: start: 201404
  3. CAPECITABINE. [Suspect]
     Active Substance: CAPECITABINE
     Dosage: 1000 MG/M2 BID FOR 14 DAYS EVERY 21 DAYS
     Dates: start: 2015
  4. TEMODAR [Suspect]
     Active Substance: TEMOZOLOMIDE
     Indication: SECRETORY ADENOMA OF PITUITARY
     Dosage: 200 MG, BID, (DAYS 10 -14)
     Route: 048
     Dates: start: 201312
  5. CAPECITABINE. [Suspect]
     Active Substance: CAPECITABINE
     Indication: PITUITARY CANCER METASTATIC
     Dosage: 1500 MG, BID, (DAYS 1-14 DAYS)
     Dates: start: 201312
  6. CAPECITABINE. [Suspect]
     Active Substance: CAPECITABINE
     Indication: SECRETORY ADENOMA OF PITUITARY
     Dosage: UNK
     Dates: start: 201403

REACTIONS (2)
  - Thrombocytopenia [Unknown]
  - Accidental overdose [Unknown]
